FAERS Safety Report 9957215 (Version 1)
Quarter: 2014Q1

REPORT INFORMATION
  Report Type: Spontaneous
  Country: US (occurrence: US)
  Receive Date: 20140304
  Receipt Date: 20140304
  Transmission Date: 20141002
  Serious: No
  Sender: FDA-Public Use
  Company Number: US-ABBVIE-13P-163-1096552-00

PATIENT
  Age: 33 Year
  Sex: Female
  Weight: 81.72 kg

DRUGS (2)
  1. HUMIRA [Suspect]
     Indication: ECZEMA
     Dates: start: 201303
  2. LEVOTHYROXINE [Concomitant]
     Indication: THYROID DISORDER

REACTIONS (4)
  - Off label use [Not Recovered/Not Resolved]
  - Incorrect dose administered [Unknown]
  - Injection site pain [Not Recovered/Not Resolved]
  - Upper respiratory tract infection [Not Recovered/Not Resolved]
